FAERS Safety Report 8040055-9 (Version None)
Quarter: 2012Q1

REPORT INFORMATION
  Report Type: 
  Country: None (occurrence: None)
  Receive Date: 20120111
  Receipt Date: 20111223
  Transmission Date: 20120608
  Serious: No
  Sender: FDA-Public Use
  Company Number: US-AMGEN-USASP2011035351

PATIENT
  Age: 53 Year
  Sex: Female

DRUGS (2)
  1. RESTASIS [Concomitant]
     Dosage: UNK
     Dates: start: 20111020
  2. ENBREL [Suspect]
     Indication: RHEUMATOID ARTHRITIS
     Dosage: 50 MG, QWK
     Dates: start: 20080710, end: 20111208

REACTIONS (11)
  - OSTEOARTHRITIS [None]
  - DRUG INEFFECTIVE [None]
  - FIBROMYALGIA [None]
  - UPPER RESPIRATORY TRACT INFECTION [None]
  - EYE INFECTION [None]
  - EYE DISCHARGE [None]
  - HAEMOPTYSIS [None]
  - ERYTHEMA OF EYELID [None]
  - RHEUMATOID ARTHRITIS [None]
  - ROSACEA [None]
  - INJECTION SITE ERYTHEMA [None]
